FAERS Safety Report 21147195 (Version 1)
Quarter: 2022Q3

REPORT INFORMATION
  Report Type: Spontaneous
  Country: BE (occurrence: BE)
  Receive Date: 20220729
  Receipt Date: 20220729
  Transmission Date: 20221026
  Serious: Yes (Hospitalization, Disabling, Other)
  Sender: FDA-Public Use
  Company Number: BE-Accord-269663

PATIENT
  Age: 70 Year
  Sex: Female
  Weight: 89 kg

DRUGS (5)
  1. PACLITAXEL [Suspect]
     Active Substance: PACLITAXEL
     Indication: Product used for unknown indication
     Dates: start: 202201, end: 202201
  2. Amlor 5 [Concomitant]
     Dosage: 2 DAILY
  3. Asaflow 80 [Concomitant]
     Dosage: 1 DAILY
  4. BISOPROLOL [Concomitant]
     Active Substance: BISOPROLOL
     Dosage: STRENGTH: 5 MG, 1 DAILY
  5. Humuline 35-26 [Concomitant]

REACTIONS (1)
  - Acute pulmonary oedema [Recovered/Resolved]
